FAERS Safety Report 12282249 (Version 1)
Quarter: 2016Q2

REPORT INFORMATION
  Report Type: Spontaneous
  Country: CA (occurrence: CA)
  Receive Date: 20160419
  Receipt Date: 20160419
  Transmission Date: 20160815
  Serious: Yes (Life-Threatening, Hospitalization)
  Sender: FDA-Public Use
  Company Number: CA-009507513-1604CAN011265

PATIENT
  Age: 26 Year
  Sex: Female

DRUGS (7)
  1. SINGULAIR [Suspect]
     Active Substance: MONTELUKAST SODIUM
     Indication: ASTHMA
     Dosage: 10 MG, HS
     Route: 048
     Dates: start: 201404, end: 201603
  2. ALVESCO [Concomitant]
     Active Substance: CICLESONIDE
     Dosage: 2 PUFFS, BID
     Route: 055
  3. RANITIDINE. [Concomitant]
     Active Substance: RANITIDINE
     Dosage: 150 MG, BID
  4. SYMBICORT [Concomitant]
     Active Substance: BUDESONIDE\FORMOTEROL FUMARATE DIHYDRATE
     Dosage: 4 PUFFS , BID
     Route: 055
  5. AVAMYS [Concomitant]
     Active Substance: FLUTICASONE FUROATE
     Dosage: 2 SPRAYS EACH NOSTRIL, BID
  6. VENTOLIN [Concomitant]
     Active Substance: ALBUTEROL SULFATE
     Dosage: UNK, Q2H
  7. XOLAIR [Concomitant]
     Active Substance: OMALIZUMAB
     Dosage: UNK, EVERY 2 WEEKS
     Route: 058

REACTIONS (2)
  - Drug dose omission [Unknown]
  - Acute respiratory failure [Unknown]

NARRATIVE: CASE EVENT DATE: 201603
